FAERS Safety Report 5182462-8 (Version None)
Quarter: 2006Q4

REPORT INFORMATION
  Report Type: 
  Country: None (occurrence: None)
  Receive Date: 20061220
  Receipt Date: 20060922
  Transmission Date: 20070319
  Serious: No
  Sender: FDA-Public Use
  Company Number: US-GLAXOSMITHKLINE-A0621147A

PATIENT
  Age: 57 Year
  Sex: Female

DRUGS (3)
  1. COMMIT [Suspect]
  2. NICODERM CQ [Suspect]
     Dates: start: 20060921
  3. WELLBUTRIN [Concomitant]

REACTIONS (3)
  - ABNORMAL DREAMS [None]
  - GLOSSODYNIA [None]
  - NERVOUSNESS [None]
